FAERS Safety Report 7328800-9 (Version None)
Quarter: 2011Q1

REPORT INFORMATION
  Report Type: 
  Country: None (occurrence: None)
  Receive Date: 20110303
  Receipt Date: 20110303
  Transmission Date: 20110831
  Serious: Yes (Hospitalization)
  Sender: FDA-Public Use
  Company Number: PHHO2008CZ06176

PATIENT
  Sex: Male
  Weight: 60.4 kg

DRUGS (6)
  1. SANDOSTATIN LAR [Suspect]
     Indication: CARCINOID SYNDROME
  2. SORTIS ^GOEDECKE^ [Concomitant]
     Dosage: 10 MG, QD
     Route: 048
     Dates: start: 20080228
  3. PLACEBO [Suspect]
     Dosage: OPEN LABEL
     Dates: start: 20080530
  4. GODASAL [Concomitant]
     Dosage: UNK
  5. PLACEBO [Suspect]
     Indication: CARCINOID TUMOUR
     Dosage: PLACEBO
     Route: 048
     Dates: start: 20080222
  6. HELICID [Concomitant]
     Dosage: 60 MG, BID
     Dates: start: 20061001

REACTIONS (6)
  - ENDOSCOPIC RETROGRADE CHOLANGIOPANCREATOGRAPHY [None]
  - NEOPLASM PROGRESSION [None]
  - MELAENA [None]
  - DUODENAL ULCER [None]
  - ENDOSCOPY UPPER GASTROINTESTINAL TRACT [None]
  - SMALL INTESTINAL HAEMORRHAGE [None]
